FAERS Safety Report 20665156 (Version 1)
Quarter: 2022Q2

REPORT INFORMATION
  Report Type: Spontaneous
  Country: US (occurrence: US)
  Receive Date: 20220401
  Receipt Date: 20220401
  Transmission Date: 20220721
  Serious: No
  Sender: FDA-Public Use
  Company Number: US-PFIZER INC-202101253679

PATIENT
  Age: 62 Year
  Sex: Female
  Weight: 69.388 kg

DRUGS (3)
  1. IBRANCE [Suspect]
     Active Substance: PALBOCICLIB
     Indication: Breast cancer female
     Dosage: 100 MG, CYCLIC (X 21 DAYS THEN 7 DAYS OFF)
     Route: 048
     Dates: start: 20210804, end: 2021
  2. IBRANCE [Suspect]
     Active Substance: PALBOCICLIB
     Dosage: 75 MG, CYCLIC (X 21 DAYS THEN 7 DAYS OFF)
     Route: 048
     Dates: start: 2021
  3. LETROZOLE [Concomitant]
     Active Substance: LETROZOLE
     Indication: Breast cancer female
     Dosage: 2.5 MG

REACTIONS (1)
  - White blood cell count decreased [Unknown]
